FAERS Safety Report 9706787 (Version 2)
Quarter: 2013Q4

REPORT INFORMATION
  Report Type: Spontaneous
  Country: JP (occurrence: JP)
  Receive Date: 20131125
  Receipt Date: 20131226
  Transmission Date: 20140711
  Serious: Yes (Hospitalization)
  Sender: FDA-Public Use
  Company Number: PHHY2013JP134392

PATIENT
  Sex: Female

DRUGS (1)
  1. EXELON PATCH [Suspect]
     Indication: DEMENTIA ALZHEIMER^S TYPE
     Dosage: UNK UKN, UNK
     Route: 062
     Dates: end: 20131125

REACTIONS (7)
  - Screaming [Not Recovered/Not Resolved]
  - Confusional state [Not Recovered/Not Resolved]
  - Scratch [Unknown]
  - Wound [Unknown]
  - Pruritus generalised [Unknown]
  - Wrong technique in drug usage process [Unknown]
  - Incorrect drug administration duration [Unknown]
